FAERS Safety Report 5957436-7 (Version None)
Quarter: 2008Q4

REPORT INFORMATION
  Report Type: 
  Country: None (occurrence: None)
  Receive Date: 20081114
  Receipt Date: 20081030
  Transmission Date: 20090506
  Serious: Yes (Other)
  Sender: FDA-Public Use
  Company Number: 036081

PATIENT
  Age: 16 Year
  Sex: Male
  Weight: 83.9 kg

DRUGS (3)
  1. CLARAVIS [Suspect]
     Indication: ACNE
     Dosage: 30 MG, QD IN AM, ORAL;; 60 MG, QD, IN PM
     Route: 048
     Dates: start: 20080108, end: 20080618
  2. CLARAVIS [Suspect]
     Indication: ACNE
     Dosage: 30 MG, QD IN AM, ORAL;; 60 MG, QD, IN PM
     Route: 048
     Dates: start: 20080108, end: 20080618
  3. ADVIL [Concomitant]

REACTIONS (2)
  - SELF INJURIOUS BEHAVIOUR [None]
  - THEFT [None]
